FAERS Safety Report 20966253 (Version 1)
Quarter: 2022Q2

REPORT INFORMATION
  Report Type: Spontaneous
  Country: CA (occurrence: CA)
  Receive Date: 20220616
  Receipt Date: 20220616
  Transmission Date: 20220720
  Serious: Yes (Death, Other)
  Sender: FDA-Public Use
  Company Number: CA-AMGEN-CANSP2022099184

PATIENT

DRUGS (2)
  1. BEVACIZUMAB [Suspect]
     Active Substance: BEVACIZUMAB
     Indication: Cerebral disorder
     Dosage: 7.5 MILLIGRAM/KILOGRAM
     Route: 065
  2. DEXAMETHASONE [Concomitant]
     Active Substance: DEXAMETHASONE
     Indication: Cerebral disorder
     Route: 065

REACTIONS (9)
  - Death [Fatal]
  - Ischaemic stroke [Unknown]
  - Metastatic malignant melanoma [Unknown]
  - Pulmonary embolism [Unknown]
  - Deep vein thrombosis [Unknown]
  - Neoplasm progression [Unknown]
  - Off label use [Unknown]
  - Wound dehiscence [Unknown]
  - Therapy non-responder [Unknown]
